FAERS Safety Report 8422328-0 (Version None)
Quarter: 2012Q2

REPORT INFORMATION
  Report Type: 
  Country: None (occurrence: None)
  Receive Date: 20120608
  Receipt Date: 20120530
  Transmission Date: 20120825
  Serious: Yes (Hospitalization)
  Sender: FDA-Public Use
  Company Number: US-ROCHE-797625

PATIENT
  Sex: Female
  Weight: 67.3 kg

DRUGS (4)
  1. PACLITAXEL [Suspect]
     Indication: MALIGNANT PERITONEAL NEOPLASM
     Dosage: DATE OF LAST DOSE ADMINISTERED: 10/AUG/2012
     Route: 042
  2. CISPLATIN [Suspect]
     Indication: MALIGNANT PERITONEAL NEOPLASM
     Dosage: DATE OF LAST DOSE ADMINISTERED: 04/AUG/2011
     Route: 033
  3. AVASTIN [Suspect]
     Indication: MALIGNANT PERITONEAL NEOPLASM
     Dosage: BEGINNING WITH CYCLE 2, DATE OF LAST DOSE ADMINISTERED : 03/AUG/2011
     Route: 042
     Dates: start: 20120601
  4. PACLITAXEL [Suspect]
     Route: 042

REACTIONS (6)
  - NAUSEA [None]
  - VOMITING [None]
  - LETHARGY [None]
  - DIARRHOEA [None]
  - MUSCULAR WEAKNESS [None]
  - HYPOMAGNESAEMIA [None]
